FAERS Safety Report 5246413-X (Version None)
Quarter: 2007Q1

REPORT INFORMATION
  Report Type: 
  Country: None (occurrence: None)
  Receive Date: 20070222
  Receipt Date: 20070222
  Transmission Date: 20070707
  Serious: No
  Sender: FDA-Public Use
  Company Number: None

PATIENT
  Age: 79 Year
  Sex: Male
  Weight: 89.4 kg

DRUGS (11)
  1. FELODIPINE [Suspect]
  2. SIMVASTATIN [Concomitant]
  3. LOSARTAN POTASSIUM [Concomitant]
  4. METOPROLOL TARTRATE [Concomitant]
  5. CLOPIDOGREL BISULFATE [Concomitant]
  6. PREDNISONE [Concomitant]
  7. LOSARTAN POTASSIUM [Concomitant]
  8. METFORMIN HCL [Concomitant]
  9. CHLORTHALIDONE [Concomitant]
  10. INSULIN NPH HUMAN 100 UNIT/ML NOVOLIN N [Concomitant]
  11. OMEPRAZOLE [Concomitant]

REACTIONS (1)
  - OEDEMA [None]
